FAERS Safety Report 19198926 (Version 2)
Quarter: 2021Q2

REPORT INFORMATION
  Report Type: Spontaneous
  Country: US (occurrence: US)
  Receive Date: 20210429
  Receipt Date: 20210527
  Transmission Date: 20210717
  Serious: Yes (Other)
  Sender: FDA-Public Use
  Company Number: US-ASTRAZENECA-2021A351442

PATIENT
  Sex: Male
  Weight: 130.2 kg

DRUGS (2)
  1. SYMBICORT [Suspect]
     Active Substance: BUDESONIDE\FORMOTEROL FUMARATE DIHYDRATE
     Indication: DYSPNOEA
     Dosage: UNKNOWN UNKNOWN
     Route: 055
  2. BREZTRI AEROSPHERE [Suspect]
     Active Substance: BUDESONIDE\FORMOTEROL\GLYCOPYRRONIUM
     Indication: PNEUMONIA
     Dosage: 160/9/4.8 MCG, TWO TIMES A DAY
     Route: 055

REACTIONS (8)
  - Pancreatitis [Unknown]
  - Device malfunction [Unknown]
  - Wrong technique in device usage process [Unknown]
  - Intentional device misuse [Unknown]
  - Pneumonia [Unknown]
  - Sepsis [Unknown]
  - Prescription drug used without a prescription [Unknown]
  - Product dose omission issue [Unknown]
